FAERS Safety Report 7034824-1 (Version None)
Quarter: 2010Q4

REPORT INFORMATION
  Report Type: 
  Country: None (occurrence: None)
  Receive Date: 20101008
  Receipt Date: 20100930
  Transmission Date: 20110411
  Serious: Yes (Other)
  Sender: FDA-Public Use
  Company Number: CH-ROXANE LABORATORIES, INC.-2010-RO-01294RO

PATIENT
  Age: 43 Year
  Sex: Male
  Weight: 75 kg

DRUGS (6)
  1. LAMOTRIGINE [Suspect]
     Indication: IMPULSE-CONTROL DISORDER
     Dosage: 25 MG
  2. LAMOTRIGINE [Suspect]
     Indication: DEPRESSIVE SYMPTOM
  3. LORAZEPAM [Suspect]
     Indication: IMPULSE-CONTROL DISORDER
     Dosage: 1 MG
  4. LORAZEPAM [Suspect]
     Indication: DEPRESSIVE SYMPTOM
  5. FLUVOXAMINE [Suspect]
     Dosage: 25 MG
  6. FLUVOXAMINE [Suspect]
     Dosage: 50 MG

REACTIONS (2)
  - DRUG ERUPTION [None]
  - HYPERVIGILANCE [None]
